FAERS Safety Report 5412179-3 (Version None)
Quarter: 2007Q3

REPORT INFORMATION
  Report Type: 
  Country: None (occurrence: None)
  Receive Date: 20070809
  Receipt Date: 20070802
  Transmission Date: 20080115
  Serious: Yes (Hospitalization)
  Sender: FDA-Public Use
  Company Number: S07-USA-01764-01

PATIENT
  Age: 39 Year
  Sex: Female
  Weight: 204.1187 kg

DRUGS (10)
  1. CELEXA [Suspect]
     Indication: DEPRESSION
     Dosage: 40 MG QD PO
     Route: 048
     Dates: end: 20070401
  2. ANESTHETICS (NOS) [Suspect]
     Indication: ANAESTHESIA
     Dates: start: 20070420, end: 20070420
  3. LASIX [Concomitant]
  4. PRINIVIL [Concomitant]
  5. CATAPRES [Concomitant]
  6. COLACE (DOCUSATE SODIUM) [Concomitant]
  7. PEPCID [Concomitant]
  8. PERCOCET (OXYDOCONE/ACETAMINOPHEN) [Concomitant]
  9. PHENERGAN [Concomitant]
  10. ACETAMINOPHEN [Concomitant]

REACTIONS (4)
  - ABSCESS [None]
  - CELLULITIS [None]
  - PROCEDURAL COMPLICATION [None]
  - RENAL FAILURE [None]
